FAERS Safety Report 20632603 (Version 1)
Quarter: 2022Q1

REPORT INFORMATION
  Report Type: Spontaneous
  Country: US (occurrence: None)
  Receive Date: 20220324
  Receipt Date: 20220324
  Transmission Date: 20220423
  Serious: Yes (Other)
  Sender: FDA-Public Use
  Company Number: 2022A117726

PATIENT
  Sex: Female

DRUGS (3)
  1. SYMBICORT [Suspect]
     Active Substance: BUDESONIDE\FORMOTEROL FUMARATE DIHYDRATE
     Dosage: UNKNOWN
     Route: 055
  2. DUPIXENT [Suspect]
     Active Substance: DUPILUMAB
     Route: 065
  3. BENADRYL [Concomitant]
     Active Substance: DIPHENHYDRAMINE HYDROCHLORIDE

REACTIONS (10)
  - Anaphylactic reaction [Unknown]
  - Pulmonary congestion [Unknown]
  - Chest discomfort [Unknown]
  - Dyspnoea [Unknown]
  - Oral pruritus [Unknown]
  - Injection site pain [Unknown]
  - Administration site pain [Unknown]
  - Throat irritation [Unknown]
  - Anxiety [Unknown]
  - Product dose omission issue [Unknown]
